FAERS Safety Report 8961810 (Version 2)
Quarter: 2013Q2

REPORT INFORMATION
  Report Type: Spontaneous
  Country: IN (occurrence: IN)
  Receive Date: 20121212
  Receipt Date: 20130502
  Transmission Date: 20140414
  Serious: Yes (Death)
  Sender: FDA-Public Use
  Company Number: IN-009507513-1212IND004024

PATIENT
  Age: 60 Year
  Sex: Male
  Weight: 91 kg

DRUGS (1)
  1. JANUMET [Suspect]
     Dosage: 2 DF, UNK
     Route: 048

REACTIONS (1)
  - Death [Fatal]
